FAERS Safety Report 11537378 (Version 1)
Quarter: 2015Q3

REPORT INFORMATION
  Report Type: Spontaneous
  Country: FR (occurrence: FR)
  Receive Date: 20150922
  Receipt Date: 20150922
  Transmission Date: 20151125
  Serious: Yes (Other)
  Sender: FDA-Public Use
  Company Number: FR-LEO PHARMA-237024

PATIENT
  Age: 59 Year
  Sex: Female

DRUGS (1)
  1. PICATO [Suspect]
     Active Substance: INGENOL MEBUTATE
     Indication: PIGMENTATION DISORDER
     Route: 061
     Dates: start: 20150905, end: 20150905

REACTIONS (4)
  - Application site burn [Recovering/Resolving]
  - Product use issue [Unknown]
  - Incorrect drug administration duration [Unknown]
  - Application site vesicles [Unknown]

NARRATIVE: CASE EVENT DATE: 20150906
